FAERS Safety Report 19156227 (Version 3)
Quarter: 2022Q2

REPORT INFORMATION
  Report Type: Spontaneous
  Country: US (occurrence: US)
  Receive Date: 20210420
  Receipt Date: 20220422
  Transmission Date: 20220721
  Serious: Yes (Other)
  Sender: FDA-Public Use
  Company Number: US-TOLMAR, INC.-21US026343

PATIENT

DRUGS (3)
  1. FENSOLVI [Suspect]
     Active Substance: LEUPROLIDE ACETATE
     Indication: Precocious puberty
     Dosage: 45 MILLIGRAM, Q 6 MONTH
     Dates: start: 20201223
  2. FENSOLVI [Suspect]
     Active Substance: LEUPROLIDE ACETATE
     Dosage: 45 MILLIGRAM, Q 6 MONTH
     Dates: start: 20210304
  3. SYNERA [Concomitant]
     Active Substance: LIDOCAINE\TETRACAINE
     Indication: Local anaesthesia
     Dosage: UNK
     Dates: start: 20210131

REACTIONS (5)
  - Disease progression [Unknown]
  - Wrong technique in product usage process [Unknown]
  - Product administration error [Unknown]
  - Syringe issue [Unknown]
  - Drug ineffective [Not Recovered/Not Resolved]

NARRATIVE: CASE EVENT DATE: 20210131
